FAERS Safety Report 8390587-9 (Version None)
Quarter: 2012Q2

REPORT INFORMATION
  Report Type: 
  Country: None (occurrence: None)
  Receive Date: 20120517
  Receipt Date: 20120502
  Transmission Date: 20120825
  Serious: Yes (Hospitalization, Other)
  Sender: FDA-Public Use
  Company Number: 2012RR-56189

PATIENT
  Age: 17 Year
  Sex: Male

DRUGS (2)
  1. ISOTRETINOIN [Concomitant]
  2. ISOTRETINOIN [Suspect]
     Indication: ACNE
     Dosage: ALTERNATING DAILY  DOSES OF 40MG AND 20MG, ORAL
     Route: 048

REACTIONS (7)
  - ACNE FULMINANS [None]
  - NASAL DRYNESS [None]
  - CHEILITIS [None]
  - MYALGIA [None]
  - DRY MOUTH [None]
  - LYMPHADENOPATHY [None]
  - BONE PAIN [None]
